FAERS Safety Report 5848878-9 (Version None)
Quarter: 2008Q3

REPORT INFORMATION
  Report Type: 
  Country: None (occurrence: None)
  Receive Date: 20080818
  Receipt Date: 20080808
  Transmission Date: 20090109
  Serious: Yes (Hospitalization)
  Sender: FDA-Public Use
  Company Number: FR-PFIZER INC-2008067107

PATIENT
  Sex: Male

DRUGS (9)
  1. TAHOR [Suspect]
     Dosage: DAILY DOSE:20MG
     Route: 048
     Dates: start: 20080617, end: 20080718
  2. AUGMENTIN '125' [Concomitant]
     Route: 048
     Dates: start: 20080610, end: 20080628
  3. ARICEPT [Concomitant]
  4. ASPIRIN [Concomitant]
  5. ASPIRIN [Concomitant]
  6. NEBIVOLOL HCL [Concomitant]
  7. COVERSYL [Concomitant]
     Dosage: DAILY DOSE:2MG
  8. TRINITRINE [Concomitant]
     Route: 062
  9. LYTOS [Concomitant]
     Dosage: FREQ:2 TABLETS IN THE EVENING

REACTIONS (3)
  - BLOOD CREATINE PHOSPHOKINASE INCREASED [None]
  - HEPATITIS [None]
  - RENAL FAILURE [None]
